FAERS Safety Report 4309519-5 (Version None)
Quarter: 2004Q1

REPORT INFORMATION
  Report Type: 
  Country: None (occurrence: None)
  Receive Date: 20040302
  Receipt Date: 20040220
  Transmission Date: 20041129
  Serious: Yes (Death)
  Sender: FDA-Public Use
  Company Number: PHBS2004US02691

PATIENT
  Age: 69 Year
  Sex: Male

DRUGS (3)
  1. CYCLOSPORINE [Suspect]
     Indication: RENAL TRANSPLANT
     Route: 065
  2. PREDNISONE [Suspect]
     Indication: RENAL TRANSPLANT
     Route: 065
  3. TACROLIMUS [Suspect]
     Route: 065

REACTIONS (3)
  - BLADDER CANCER [None]
  - HAEMATURIA [None]
  - TRANSURETHRAL BLADDER RESECTION [None]
